FAERS Safety Report 8606746 (Version 3)
Quarter: 2013Q4

REPORT INFORMATION
  Report Type: Spontaneous
  Country: US (occurrence: US)
  Receive Date: 20120611
  Receipt Date: 20131129
  Transmission Date: 20140711
  Serious: Yes (Hospitalization, Disabling)
  Sender: FDA-Public Use
  Company Number: US-ASTRAZENECA-2012SE34750

PATIENT
  Age: 56 Year
  Sex: Female
  Weight: 79.4 kg

DRUGS (20)
  1. NEXIUM [Suspect]
     Indication: GASTROOESOPHAGEAL REFLUX DISEASE
     Dosage: ONCE A DAY, 30 NEXIUM A MONTH FOR MANY YEARS
     Route: 048
     Dates: start: 2003, end: 2012
  2. NEXIUM [Suspect]
     Indication: GASTROOESOPHAGEAL REFLUX DISEASE
     Route: 048
     Dates: start: 20050912
  3. PANTOPRAZOLE [Concomitant]
     Indication: DYSPEPSIA
  4. PEPTO-BISMOL [Concomitant]
     Dosage: 3 TABLESPOONFULL DAILY
  5. VICODIN [Concomitant]
     Indication: PAIN
  6. DARVOCET N [Concomitant]
     Indication: PAIN
  7. AMBIEN [Concomitant]
     Indication: SLEEP DISORDER
  8. XANAX [Concomitant]
     Indication: ANXIETY
  9. ZANAFLEX [Concomitant]
     Indication: RESTLESS LEGS SYNDROME
  10. LASIX [Concomitant]
     Indication: DIURETIC THERAPY
  11. HTZ [Concomitant]
     Indication: DIURETIC THERAPY
  12. POTASSIUM [Concomitant]
     Indication: HYPOKALAEMIA
  13. AMMONIUM LACTATE [Concomitant]
     Indication: SKIN DISORDER
  14. PHENERGAN [Concomitant]
     Indication: NAUSEA
  15. NIACIN [Concomitant]
     Indication: BLOOD CHOLESTEROL
  16. LYRICA [Concomitant]
     Dates: start: 20050721
  17. ZIPRASIDONE [Concomitant]
     Dates: start: 20050721
  18. PERCOCET [Concomitant]
     Dosage: 5-325 MG
     Dates: start: 20051015
  19. VALTREX [Concomitant]
     Dates: start: 20051011
  20. PREDNISONE [Concomitant]
     Dates: start: 20060120

REACTIONS (17)
  - Limb discomfort [Unknown]
  - Arthropathy [Unknown]
  - Pain in extremity [Unknown]
  - Thrombosis [Unknown]
  - Tibia fracture [Unknown]
  - Fibula fracture [Unknown]
  - Osteoporosis [Unknown]
  - Multiple fractures [Unknown]
  - Bone disorder [Unknown]
  - Fall [Unknown]
  - Bone loss [Unknown]
  - Lower limb fracture [Unknown]
  - Bone pain [Unknown]
  - Lung disorder [Unknown]
  - Glaucoma [Unknown]
  - Cataract [Unknown]
  - Depression [Unknown]
